FAERS Safety Report 20109534 (Version 1)
Quarter: 2021Q4

REPORT INFORMATION
  Report Type: Spontaneous
  Country: CA (occurrence: CA)
  Receive Date: 20211124
  Receipt Date: 20211124
  Transmission Date: 20220303
  Serious: Yes (Hospitalization)
  Sender: FDA-Public Use
  Company Number: CA-009507513-2111CAN007507

PATIENT
  Sex: Male
  Weight: 3 kg

DRUGS (3)
  1. ISENTRESS [Suspect]
     Active Substance: RALTEGRAVIR POTASSIUM
     Indication: HIV test positive
     Dosage: 400 MILLIGRAM, 2 EVERY 1 DAYS
     Route: 064
  2. EMTRICITABINE AND TENOFOVIR DISOPROXIL FUMARATE [Suspect]
     Active Substance: EMTRICITABINE\TENOFOVIR DISOPROXIL FUMARATE
     Indication: HIV test positive
     Dosage: 1 DOSAGE FORM, 1 EVERY 1 DAYS
     Route: 064
  3. ZIDOVUDINE [Concomitant]
     Active Substance: ZIDOVUDINE
     Dosage: NOT SPECIFIED

REACTIONS (3)
  - Foetal exposure during pregnancy [Recovered/Resolved]
  - Hyperkalaemia [Recovered/Resolved]
  - Hyponatraemia [Recovered/Resolved]
